FAERS Safety Report 7730130-8 (Version None)
Quarter: 2011Q3

REPORT INFORMATION
  Report Type: 
  Country: None (occurrence: None)
  Receive Date: 20110906
  Receipt Date: 20110829
  Transmission Date: 20111222
  Serious: Yes (Other)
  Sender: FDA-Public Use
  Company Number: PHHY2011US30753

PATIENT
  Sex: Female

DRUGS (1)
  1. GLEEVEC [Suspect]
     Indication: MALIGNANT MAST CELL NEOPLASM
     Dosage: 300 MG, QD
     Route: 048
     Dates: start: 20101124

REACTIONS (3)
  - STREPTOBACILLUS INFECTION [None]
  - DIARRHOEA [None]
  - MALAISE [None]
